FAERS Safety Report 9408964 (Version 1)
Quarter: 2013Q3

REPORT INFORMATION
  Report Type: Spontaneous
  Country: US (occurrence: TW)
  Receive Date: 20130719
  Receipt Date: 20130719
  Transmission Date: 20140515
  Serious: Yes (Hospitalization)
  Sender: FDA-Public Use
  Company Number: US-MERCK-1307IND007637

PATIENT
  Age: 32 Year
  Sex: Male
  Weight: 66.49 kg

DRUGS (2)
  1. ASENAPINE MALEATE [Suspect]
     Indication: CONDITION AGGRAVATED
     Dosage: 5 MG, BID
     Route: 060
     Dates: start: 20120330
  2. ASENAPINE MALEATE [Suspect]
     Indication: SCHIZOPHRENIA

REACTIONS (2)
  - Condition aggravated [Unknown]
  - Schizophrenia [Unknown]
